FAERS Safety Report 8067313-6 (Version None)
Quarter: 2012Q1

REPORT INFORMATION
  Report Type: 
  Country: None (occurrence: None)
  Receive Date: 20120124
  Receipt Date: 20110701
  Transmission Date: 20120608
  Serious: Yes (Other)
  Sender: FDA-Public Use
  Company Number: BE-GLAXOSMITHKLINE-B0731825A

PATIENT
  Sex: Male
  Weight: 74 kg

DRUGS (3)
  1. FLUTICASONE FUROATE [Suspect]
     Indication: PRODUCT USED FOR UNKNOWN INDICATION
     Route: 045
  2. FLUTICASONE PROPIONATE [Suspect]
     Indication: NASAL POLYPS
     Dosage: 2PUFF TWICE PER DAY
     Route: 045
     Dates: start: 20080414, end: 20110101
  3. GLAUCOMA MEDICATION (UNSPECIFIED) [Concomitant]

REACTIONS (2)
  - FACIAL PAIN [None]
  - GLAUCOMA [None]
